FAERS Safety Report 8300802 (Version 2)
Quarter: 2013Q2

REPORT INFORMATION
  Report Type: Spontaneous
  Country: US (occurrence: US)
  Receive Date: 20111219
  Receipt Date: 20130401
  Transmission Date: 20140414
  Serious: No
  Sender: FDA-Public Use
  Company Number: US-ASTRAZENECA-2011SE22946

PATIENT
  Age: 789 Month
  Sex: Female

DRUGS (4)
  1. CRESTOR [Suspect]
     Indication: BLOOD CHOLESTEROL INCREASED
     Route: 048
     Dates: start: 20110416
  2. VITAMIN D [Concomitant]
     Indication: BONE DISORDER
  3. CALCIUM [Concomitant]
     Indication: BONE DISORDER
  4. FISH OIL [Concomitant]
     Indication: CARDIAC DISORDER

REACTIONS (3)
  - Tendonitis [Unknown]
  - Back pain [Not Recovered/Not Resolved]
  - Sleep disorder [Not Recovered/Not Resolved]
